FAERS Safety Report 5008396-7 (Version None)
Quarter: 2006Q2

REPORT INFORMATION
  Report Type: 
  Country: None (occurrence: None)
  Receive Date: 20060523
  Receipt Date: 20060404
  Transmission Date: 20061013
  Serious: Yes (Other)
  Sender: FDA-Public Use
  Company Number: PHNU2006DE01581

PATIENT
  Age: 56 Year
  Sex: Female
  Weight: 56 kg

DRUGS (1)
  1. ZOMETA [Suspect]
     Indication: BREAST CANCER METASTATIC
     Dosage: 4 MG, QMO
     Route: 042
     Dates: start: 20040801, end: 20060201

REACTIONS (2)
  - JAW OPERATION [None]
  - OSTEONECROSIS [None]
